FAERS Safety Report 12055436 (Version 1)
Quarter: 2016Q1

REPORT INFORMATION
  Report Type: Spontaneous
  Country: FI (occurrence: FI)
  Receive Date: 20160209
  Receipt Date: 20160209
  Transmission Date: 20160526
  Serious: Yes (Disabling, Other)
  Sender: FDA-Public Use
  Company Number: FI-HQ SPECIALTY-FI-2016INT000043

PATIENT
  Age: 48 Year
  Sex: Female

DRUGS (3)
  1. METHOTREXATE SODIUM. [Suspect]
     Active Substance: METHOTREXATE SODIUM
     Dosage: 2.8571 MG, (20 MG, 1 IN 1 W); SOLUTION FOR INJECTION
     Route: 058
     Dates: start: 20150422
  2. FOLIC ACID. [Suspect]
     Active Substance: FOLIC ACID
     Indication: SUPPORTIVE CARE
     Dosage: UNK
     Dates: start: 20150422
  3. METHOTREXATE SODIUM. [Suspect]
     Active Substance: METHOTREXATE SODIUM
     Indication: PRODUCT USED FOR UNKNOWN INDICATION
     Dosage: UNK; TABLET
     Route: 048
     Dates: end: 20150422

REACTIONS (16)
  - Incorrect product storage [Unknown]
  - Inflammatory bowel disease [Not Recovered/Not Resolved]
  - Psoriasis [Not Recovered/Not Resolved]
  - General physical health deterioration [Not Recovered/Not Resolved]
  - Fatigue [Not Recovered/Not Resolved]
  - Inadequate aseptic technique in use of product [Unknown]
  - Drug prescribing error [Unknown]
  - Urinary tract infection [Not Recovered/Not Resolved]
  - Underdose [Unknown]
  - Herpes zoster [Not Recovered/Not Resolved]
  - Product label issue [Unknown]
  - Multiple use of single-use product [Unknown]
  - Exposure to toxic agent [Recovered/Resolved]
  - Drug dispensing error [Unknown]
  - Psoriatic arthropathy [Not Recovered/Not Resolved]
  - Product quality issue [Unknown]

NARRATIVE: CASE EVENT DATE: 201505
